FAERS Safety Report 23916777 (Version 3)
Quarter: 2024Q3

REPORT INFORMATION
  Report Type: Spontaneous
  Country: US (occurrence: US)
  Receive Date: 20240529
  Receipt Date: 20240724
  Transmission Date: 20241016
  Serious: No
  Sender: NOVARTIS
  Company Number: US-002147023-NVSC2024US111415

PATIENT

DRUGS (4)
  1. VALSARTAN [Suspect]
     Active Substance: VALSARTAN
     Indication: Stress
     Dosage: 80 MG
     Route: 065
  2. VALSARTAN [Suspect]
     Active Substance: VALSARTAN
     Indication: Blood pressure measurement
     Dosage: 40 MG (CUT THE PILL IN HALF)
     Route: 065
  3. VALSARTAN [Suspect]
     Active Substance: VALSARTAN
     Dosage: 40 MG (EVERY OTHER DAY FOR ANOTHER WEEK)
     Route: 065
  4. UNSPECIFIED INGREDIENT [Concomitant]
     Active Substance: UNSPECIFIED INGREDIENT
     Indication: Hypertension
     Dosage: UNK
     Route: 065

REACTIONS (9)
  - Exercise tolerance decreased [Unknown]
  - Heart rate increased [Unknown]
  - Panic disorder [Unknown]
  - General physical health deterioration [Unknown]
  - Hypotension [Unknown]
  - Fatigue [Unknown]
  - Blood pressure decreased [Unknown]
  - Anxiety [Unknown]
  - Wrong technique in product usage process [Unknown]
